FAERS Safety Report 6641617-3 (Version None)
Quarter: 2010Q1

REPORT INFORMATION
  Report Type: 
  Country: None (occurrence: None)
  Receive Date: 20100317
  Receipt Date: 20100317
  Transmission Date: 20100710
  Serious: Yes (Hospitalization)
  Sender: FDA-Public Use
  Company Number: None

PATIENT
  Sex: Male
  Weight: 93.5 kg

DRUGS (8)
  1. CARBOPLATIN [Suspect]
     Dosage: 256 MG
  2. TAXOL [Suspect]
     Dosage: 45 MG
  3. ASPIRIN [Concomitant]
  4. FLOMAX [Concomitant]
  5. HYDROCODONE [Concomitant]
  6. KETOCONAZOLE [Concomitant]
  7. METFORMIN HCL [Concomitant]
  8. NEXIUM [Concomitant]

REACTIONS (1)
  - OESOPHAGITIS [None]
